FAERS Safety Report 25674570 (Version 1)
Quarter: 2025Q3

REPORT INFORMATION
  Report Type: Spontaneous
  Country: US (occurrence: US)
  Receive Date: 20250813
  Receipt Date: 20250813
  Transmission Date: 20251021
  Serious: Yes (Other)
  Sender: DR REDDYS
  Company Number: US-DRL-USA-USA/2025/08/012140

PATIENT
  Age: 34 Year
  Sex: Female

DRUGS (2)
  1. NORETHINDRONE [Suspect]
     Active Substance: NORETHINDRONE
     Indication: Catamenial pneumothorax
     Route: 048
  2. LEUPROLIDE [Concomitant]
     Active Substance: LEUPROLIDE
     Indication: Catamenial pneumothorax

REACTIONS (1)
  - Drug ineffective for unapproved indication [Unknown]
